FAERS Safety Report 5988750-7 (Version None)
Quarter: 2008Q4

REPORT INFORMATION
  Report Type: 
  Country: None (occurrence: None)
  Receive Date: 20081210
  Receipt Date: 20081202
  Transmission Date: 20090506
  Serious: Yes (Other)
  Sender: FDA-Public Use
  Company Number: PHEH2006US15260

PATIENT
  Sex: Female
  Weight: 66.667 kg

DRUGS (31)
  1. AREDIA [Suspect]
     Dosage: 90 MG, QMO
     Dates: start: 20011206
  2. ZOMETA [Suspect]
     Indication: METASTASES TO BONE
     Dosage: 4 MG, UNK
     Dates: start: 20020601, end: 20060301
  3. TAMOXIFEN [Concomitant]
  4. ASPIRIN [Concomitant]
     Dosage: 4 PER DAY
  5. IBUPROFEN TABLETS [Concomitant]
     Dosage: 200MG 2 PER DAY
  6. CALCIUM [Concomitant]
     Dosage: 2 PER DAY
  7. VITAMINS [Concomitant]
     Dosage: 1 PER DAY
  8. ARIMIDEX [Concomitant]
     Dosage: UNK
     Dates: start: 20010101, end: 20050321
  9. PREVACID [Concomitant]
     Dosage: 30 MG, BID
  10. ALPRAZOLAM [Concomitant]
     Dosage: 0.25 MG TID AND PRN
  11. ZOFRAN [Concomitant]
     Dosage: PRN
     Dates: start: 20010101
  12. MORPHINE [Concomitant]
  13. FOSAMAX [Concomitant]
     Indication: OSTEOPOROSIS
     Dosage: UNK
     Dates: start: 20010101, end: 20010101
  14. RADIATION [Concomitant]
  15. ZOLADEX [Concomitant]
     Dosage: 3.6 MG MONTHLY INJECTION
     Dates: start: 20020101, end: 20040101
  16. LUPRON [Concomitant]
  17. EXEMESTANE [Concomitant]
     Dosage: 25 MG, QD
     Dates: start: 20050101
  18. AROMASIN [Concomitant]
     Dosage: UNK
     Dates: start: 20050321, end: 20050718
  19. FASLODEX [Concomitant]
     Dosage: 250 MG IM MONTHLY INJECTION
     Dates: start: 20060425, end: 20060901
  20. ROMOZIN ^GLAXO WELLCOME^ [Concomitant]
     Dosage: UNK
     Dates: end: 20060328
  21. STEROIDS NOS [Concomitant]
     Dosage: UNK
     Route: 042
     Dates: start: 20061001, end: 20061001
  22. DECADRON                                /CAN/ [Concomitant]
     Indication: RADIOTHERAPY
     Dosage: UNK
     Route: 048
     Dates: start: 20061001
  23. VITAMIN B 1-6-12 [Concomitant]
     Dosage: 100 MG, BID
  24. XELODA [Concomitant]
     Dosage: 1500 MG, BID
  25. COMPAZINE [Concomitant]
     Dosage: PRN
  26. LEXAPRO [Concomitant]
     Indication: DEPRESSION
     Dosage: 10 MG, QD
     Dates: start: 20071101
  27. ARANESP [Concomitant]
     Indication: ANAEMIA
     Dosage: 300 MCG
  28. CHEMOTHERAPEUTICS NOS [Concomitant]
     Route: 042
  29. AVASTIN [Concomitant]
     Dosage: 5 MG/KG
  30. GEMZAR [Concomitant]
     Dosage: 800 MG/M2
  31. OMEPRAZOLE [Concomitant]
     Dosage: 40 MG, QD

REACTIONS (26)
  - AGEUSIA [None]
  - ANAEMIA [None]
  - ANXIETY [None]
  - BLOOD ALKALINE PHOSPHATASE INCREASED [None]
  - BONE LESION [None]
  - CARDIAC MURMUR [None]
  - CAROTID BRUIT [None]
  - CENTRAL VENOUS CATHETERISATION [None]
  - COMPRESSION FRACTURE [None]
  - DECREASED INTEREST [None]
  - DEPRESSION [None]
  - GENERAL PHYSICAL HEALTH DETERIORATION [None]
  - HOT FLUSH [None]
  - INTERVERTEBRAL DISC DEGENERATION [None]
  - LUNG DISORDER [None]
  - MENOPAUSE [None]
  - METASTASES TO BONE [None]
  - NEUTROPHIL COUNT INCREASED [None]
  - OEDEMA PERIPHERAL [None]
  - OSTEOMYELITIS [None]
  - OSTEONECROSIS [None]
  - PAIN [None]
  - PAIN IN EXTREMITY [None]
  - PLATELET COUNT INCREASED [None]
  - SURGERY [None]
  - TOOTH DISORDER [None]
